FAERS Safety Report 10100779 (Version 1)
Quarter: 2014Q2

REPORT INFORMATION
  Report Type: Spontaneous
  Country: DE (occurrence: DE)
  Receive Date: 20140423
  Receipt Date: 20140423
  Transmission Date: 20141212
  Serious: Yes (Other)
  Sender: FDA-Public Use
  Company Number: PHHY2014DE046238

PATIENT
  Age: 72 Year
  Sex: Male

DRUGS (5)
  1. HYDROCHLOROTHIAZIDE [Suspect]
     Dosage: UNK UKN, UNK
  2. RAMIPRIL [Interacting]
     Dosage: UNK UKN, UNK
  3. INSPRA [Interacting]
     Dosage: UNK UKN, UNK
     Dates: start: 2012
  4. DIGITOXIN [Concomitant]
     Dosage: UNK UKN, UNK
  5. METOPROLOL [Concomitant]
     Dosage: UNK UKN, UNK

REACTIONS (3)
  - Cheyne-Stokes respiration [Unknown]
  - Insomnia [Unknown]
  - Drug interaction [Unknown]
